FAERS Safety Report 5363970-3 (Version None)
Quarter: 2007Q2

REPORT INFORMATION
  Report Type: 
  Country: None (occurrence: None)
  Receive Date: 20070620
  Receipt Date: 20070611
  Transmission Date: 20071010
  Serious: Yes (Other)
  Sender: FDA-Public Use
  Company Number: JP-PFIZER INC-2007049229

PATIENT
  Age: 71 Year
  Sex: Male

DRUGS (2)
  1. LIPITOR [Suspect]
     Dosage: DAILY DOSE:5MG-FREQ:DAILY
     Route: 048
  2. VALTREX [Concomitant]

REACTIONS (1)
  - PANCYTOPENIA [None]
